FAERS Safety Report 19784333 (Version 2)
Quarter: 2021Q3

REPORT INFORMATION
  Report Type: Report from Study
  Country: NO (occurrence: NO)
  Receive Date: 20210903
  Receipt Date: 20210922
  Transmission Date: 20211014
  Serious: Yes (Other)
  Sender: FDA-Public Use
  Company Number: NO-ROCHE-2903467

PATIENT
  Age: 74 Year
  Sex: Female
  Weight: 54.2 kg

DRUGS (13)
  1. IDOFORM [Concomitant]
     Dosage: 1 TBL
     Route: 048
     Dates: start: 202104
  2. IBUX [Concomitant]
     Active Substance: IBUPROFEN
     Indication: PAIN
     Route: 048
     Dates: start: 20210707
  3. ATEZOLIZUMAB. [Suspect]
     Active Substance: ATEZOLIZUMAB
     Indication: CERVIX CARCINOMA
     Dosage: LAST DOSES PRIOR TO THE EVENT ONSET WAS ON 29?JUL?2021
     Route: 042
     Dates: start: 20210618
  4. ZOPICLONE [Concomitant]
     Active Substance: ZOPICLONE
     Indication: INSOMNIA
     Route: 048
     Dates: start: 20210624
  5. LOPERAMID [Concomitant]
     Active Substance: LOPERAMIDE
     Indication: DIARRHOEA
     Route: 048
     Dates: start: 201507
  6. OVESTERIN [Concomitant]
     Active Substance: ESTRIOL
     Indication: OESTROGEN DEFICIENCY
     Dates: start: 2018
  7. HYLO DUAL [Concomitant]
     Indication: DRY EYE
     Dosage: GTT
     Route: 047
     Dates: start: 2019
  8. VITAMIN K2 [Concomitant]
     Active Substance: MENAQUINONE 6
     Route: 048
     Dates: start: 2020
  9. MAGNESIUM [Concomitant]
     Active Substance: MAGNESIUM
     Dates: start: 2020
  10. OXYCONTIN [Concomitant]
     Active Substance: OXYCODONE HYDROCHLORIDE
     Indication: PAIN
     Route: 048
     Dates: start: 20210728
  11. PARACETAMOL [Concomitant]
     Active Substance: ACETAMINOPHEN
     Indication: PAIN
     Route: 048
     Dates: start: 2015
  12. L?SERINE [Concomitant]
     Dosage: 1 TBI
     Dates: start: 202006
  13. OXYNORM [Concomitant]
     Active Substance: OXYCODONE HYDROCHLORIDE
     Indication: PAIN
     Route: 048
     Dates: start: 20210728

REACTIONS (1)
  - Large intestine perforation [Not Recovered/Not Resolved]

NARRATIVE: CASE EVENT DATE: 20210817
